FAERS Safety Report 24971604 (Version 1)
Quarter: 2025Q1

REPORT INFORMATION
  Report Type: Spontaneous
  Country: RS (occurrence: RS)
  Receive Date: 20250214
  Receipt Date: 20250214
  Transmission Date: 20250409
  Serious: Yes (Death)
  Sender: EMD SERONO INC
  Company Number: RS-Merck Healthcare KGaA-2025007666

PATIENT
  Age: 72 Year
  Sex: Male

DRUGS (3)
  1. BAVENCIO [Suspect]
     Active Substance: AVELUMAB
     Indication: Bladder cancer
  2. LISINOPRIL [Concomitant]
     Active Substance: LISINOPRIL
     Indication: Hypertension
  3. PRESOLOL [BISOPROLOL FUMARATE] [Concomitant]
     Indication: Hypertension

REACTIONS (1)
  - Disease progression [Fatal]
